FAERS Safety Report 4826105-9 (Version None)
Quarter: 2005Q4

REPORT INFORMATION
  Report Type: 
  Country: None (occurrence: None)
  Receive Date: 20051111
  Receipt Date: 20050818
  Transmission Date: 20060501
  Serious: Yes (Hospitalization)
  Sender: FDA-Public Use
  Company Number: FR-BRISTOL-MYERS SQUIBB COMPANY-13083977

PATIENT
  Age: 50 Year
  Sex: Male
  Weight: 91 kg

DRUGS (4)
  1. REYATAZ [Suspect]
     Indication: HIV INFECTION
     Route: 048
     Dates: start: 20040518
  2. NORVIR [Concomitant]
  3. VIREAD [Concomitant]
     Dates: start: 20040518
  4. EPIVIR [Concomitant]

REACTIONS (2)
  - CORONARY ARTERY STENOSIS [None]
  - MYOCARDIAL INFARCTION [None]
